FAERS Safety Report 12317206 (Version 1)
Quarter: 2016Q2

REPORT INFORMATION
  Report Type: Spontaneous
  Country: US (occurrence: US)
  Receive Date: 20160429
  Receipt Date: 20160429
  Transmission Date: 20160815
  Serious: No
  Sender: FDA-Public Use
  Company Number: PHEH2016US010445

PATIENT
  Age: 60 Year
  Sex: Male
  Weight: 83 kg

DRUGS (1)
  1. ENTRESTO [Suspect]
     Active Substance: SACUBITRIL\VALSARTAN
     Indication: PRODUCT USED FOR UNKNOWN INDICATION
     Dosage: 49/51 MG, BID
     Route: 048
     Dates: start: 20160419

REACTIONS (4)
  - Peripheral coldness [Unknown]
  - Visual impairment [Recovering/Resolving]
  - Dyspnoea [Unknown]
  - Palpitations [Unknown]

NARRATIVE: CASE EVENT DATE: 20160419
